FAERS Safety Report 6785009-5 (Version None)
Quarter: 2010Q2

REPORT INFORMATION
  Report Type: 
  Country: None (occurrence: None)
  Receive Date: 20100622
  Receipt Date: 20100609
  Transmission Date: 20101027
  Serious: Yes (Hospitalization)
  Sender: FDA-Public Use
  Company Number: GB-ELI_LILLY_AND_COMPANY-GB201006002467

PATIENT
  Sex: Female
  Weight: 108.2 kg

DRUGS (7)
  1. PEMETREXED [Suspect]
     Indication: NON-SMALL CELL LUNG CANCER
     Dosage: 825 MG, 3/W
     Route: 042
     Dates: start: 20090501
  2. CISPLATIN [Suspect]
     Indication: NON-SMALL CELL LUNG CANCER
     Dosage: 167 MG, 3/W
     Route: 042
     Dates: start: 20090501, end: 20090703
  3. FOLIC ACID [Concomitant]
     Indication: SUPPLEMENTATION THERAPY
     Dates: start: 20090424
  4. VITAMIN B-12 [Concomitant]
     Indication: SUPPLEMENTATION THERAPY
     Dates: start: 20090424
  5. DEXAMETHASONE ACETATE [Concomitant]
     Indication: PROPHYLAXIS
     Dates: start: 20090430
  6. PROCHLORPERAZINE MALEATE [Concomitant]
     Indication: NAUSEA
     Dates: start: 20100607
  7. ANTEPSIN [Concomitant]
     Indication: COLITIS
     Dates: start: 20100423

REACTIONS (3)
  - DIZZINESS [None]
  - NAUSEA [None]
  - VOMITING [None]
